FAERS Safety Report 5732404-9 (Version None)
Quarter: 2008Q2

REPORT INFORMATION
  Report Type: 
  Country: None (occurrence: None)
  Receive Date: 20080508
  Receipt Date: 20080429
  Transmission Date: 20081010
  Serious: Yes (Death)
  Sender: FDA-Public Use
  Company Number: US-BAXTER-2008BH004010

PATIENT
  Age: 58 Year
  Sex: Male

DRUGS (3)
  1. DIANEAL [Suspect]
     Indication: PERITONEAL DIALYSIS
     Dosage: DOSE UNIT:UNKNOWN
     Route: 033
     Dates: end: 20080420
  2. DIANEAL [Suspect]
     Indication: PERITONEAL DIALYSIS
     Dosage: DOSE UNIT:UNKNOWN
     Route: 033
     Dates: end: 20080420
  3. EPOGEN [Concomitant]
     Dates: start: 20071201

REACTIONS (4)
  - CARDIAC ARREST [None]
  - MALAISE [None]
  - MUSCULOSKELETAL PAIN [None]
  - PERICARDIAL EFFUSION [None]
